FAERS Safety Report 13815232 (Version 1)
Quarter: 2017Q3

REPORT INFORMATION
  Report Type: Spontaneous
  Country: JP (occurrence: JP)
  Receive Date: 20170731
  Receipt Date: 20170731
  Transmission Date: 20171127
  Serious: Yes (Other)
  Sender: FDA-Public Use
  Company Number: JP-ASTELLAS-2017JP001087

PATIENT
  Sex: Female
  Weight: 64 kg

DRUGS (17)
  1. PROGRAF [Suspect]
     Active Substance: TACROLIMUS\TACROLIMUS ANHYDROUS
     Route: 048
     Dates: start: 20081108
  2. PREDONINE [Concomitant]
     Active Substance: PREDNISOLONE
     Dosage: 15.0 MG, ONCE DAILY
     Route: 048
  3. PREDONINE [Concomitant]
     Active Substance: PREDNISOLONE
     Indication: LUPUS NEPHRITIS
     Route: 048
     Dates: end: 20080204
  4. PROGRAF [Suspect]
     Active Substance: TACROLIMUS\TACROLIMUS ANHYDROUS
     Indication: SYSTEMIC LUPUS ERYTHEMATOSUS
     Route: 048
     Dates: start: 20071117, end: 20080904
  5. BAYASPIRIN [Concomitant]
     Active Substance: ASPIRIN
     Indication: SYSTEMIC LUPUS ERYTHEMATOSUS
     Route: 048
  6. PROGRAF [Suspect]
     Active Substance: TACROLIMUS\TACROLIMUS ANHYDROUS
     Indication: LUPUS NEPHRITIS
     Route: 048
     Dates: start: 20070921, end: 20071116
  7. PREDONINE [Concomitant]
     Active Substance: PREDNISOLONE
     Indication: SYSTEMIC LUPUS ERYTHEMATOSUS
     Route: 048
     Dates: start: 20080205, end: 20080411
  8. REBAMIPIDE [Concomitant]
     Active Substance: REBAMIPIDE
     Indication: SYSTEMIC LUPUS ERYTHEMATOSUS
     Dosage: 100 MG, AT THE TIME OF PAIN
     Route: 048
  9. PREDONINE [Concomitant]
     Active Substance: PREDNISOLONE
     Dosage: 15.0 MG, ONCE DAILY
     Route: 048
     Dates: start: 20080511, end: 20080712
  10. PREDONINE [Concomitant]
     Active Substance: PREDNISOLONE
     Route: 048
     Dates: start: 20081214, end: 20090110
  11. AZULENE GLUTAMINE [Concomitant]
     Indication: SYSTEMIC LUPUS ERYTHEMATOSUS
     Dosage: 2 G IN TOTAL/A DAY, THRICE DAILY
     Route: 048
  12. LOXOPROFEN                         /00890702/ [Concomitant]
     Active Substance: LOXOPROFEN
     Indication: SYSTEMIC LUPUS ERYTHEMATOSUS
     Dosage: 60 MG, AT THE TIME OF PAIN
     Route: 048
  13. PROGRAF [Suspect]
     Active Substance: TACROLIMUS\TACROLIMUS ANHYDROUS
     Route: 048
  14. PREDONINE [Concomitant]
     Active Substance: PREDNISOLONE
     Route: 048
     Dates: start: 20080412, end: 20080510
  15. PREDONINE [Concomitant]
     Active Substance: PREDNISOLONE
     Route: 048
     Dates: start: 20080713, end: 20081213
  16. PREDONINE [Concomitant]
     Active Substance: PREDNISOLONE
     Route: 048
     Dates: start: 20090111
  17. POLARAMINE [Concomitant]
     Active Substance: DEXCHLORPHENIRAMINE MALEATE
     Indication: URTICARIA
     Route: 048

REACTIONS (2)
  - Maternal exposure during pregnancy [Unknown]
  - Premature labour [Unknown]

NARRATIVE: CASE EVENT DATE: 2016
